FAERS Safety Report 15986796 (Version 2)
Quarter: 2019Q1

REPORT INFORMATION
  Report Type: Spontaneous
  Country: US (occurrence: US)
  Receive Date: 20190220
  Receipt Date: 20190227
  Transmission Date: 20190418
  Serious: Yes (Other)
  Sender: FDA-Public Use
  Company Number: US-BAUSCH-BL-2019-004989

PATIENT
  Age: 66 Year
  Sex: Male

DRUGS (2)
  1. INDAPAMIDE. [Concomitant]
     Active Substance: INDAPAMIDE
     Indication: PRODUCT USED FOR UNKNOWN INDICATION
  2. SILIQ [Suspect]
     Active Substance: BRODALUMAB
     Indication: PSORIASIS
     Dosage: 210 MG/1.5 ML
     Route: 058
     Dates: start: 20180621

REACTIONS (1)
  - Pulmonary oedema [Not Recovered/Not Resolved]

NARRATIVE: CASE EVENT DATE: 20190208
